FAERS Safety Report 18128470 (Version 1)
Quarter: 2020Q3

REPORT INFORMATION
  Report Type: Spontaneous
  Country: US (occurrence: US)
  Receive Date: 20200808
  Receipt Date: 20200808
  Transmission Date: 20201103
  Serious: Yes (Other)
  Sender: FDA-Public Use
  Company Number: None

PATIENT
  Age: 34 Year
  Sex: Female
  Weight: 110.25 kg

DRUGS (1)
  1. BLUMEN CLEAR ADVANCED HAND SANITIZER [Suspect]
     Active Substance: ALCOHOL
     Indication: COVID-19 PROPHYLAXIS
     Route: 061
     Dates: start: 20200720, end: 20200807

REACTIONS (4)
  - Recalled product administered [None]
  - Vision blurred [None]
  - Diplopia [None]
  - Headache [None]

NARRATIVE: CASE EVENT DATE: 20200720
